FAERS Safety Report 18978598 (Version 1)
Quarter: 2021Q1

REPORT INFORMATION
  Report Type: Report from Study
  Country: DE (occurrence: DE)
  Receive Date: 20210308
  Receipt Date: 20210308
  Transmission Date: 20210420
  Serious: Yes (Other)
  Sender: FDA-Public Use
  Company Number: DE-UCBSA-2021009952

PATIENT
  Age: 6 Year
  Sex: Male

DRUGS (2)
  1. BRIVARACETAM [Suspect]
     Active Substance: BRIVARACETAM
     Dosage: SLIGHTEST INCREASE OF THE DOSE
  2. BRIVARACETAM [Suspect]
     Active Substance: BRIVARACETAM
     Indication: EPILEPSY
     Dosage: UNK

REACTIONS (3)
  - Schizophrenia [Unknown]
  - Aggression [Unknown]
  - Pyrexia [Unknown]
